FAERS Safety Report 9819030 (Version 1)
Quarter: 2014Q1

REPORT INFORMATION
  Report Type: Spontaneous
  Country: CH (occurrence: None)
  Receive Date: 20140113
  Receipt Date: 20140113
  Transmission Date: 20141002
  Serious: Yes (Life-Threatening, Hospitalization)
  Sender: FDA-Public Use
  Company Number: 20130754

PATIENT
  Age: 52 Year
  Sex: Female
  Weight: 61 kg

DRUGS (1)
  1. FERINJECT [Suspect]
     Indication: IRON DEFICIENCY
     Dosage: 1 ML (01/2 AMP.) IN 250 ML INTRAVENOUS DRIP
     Dates: start: 20131114

REACTIONS (3)
  - Feeling hot [None]
  - Palpitations [None]
  - Fear of death [None]
